FAERS Safety Report 26198768 (Version 1)
Quarter: 2025Q4

REPORT INFORMATION
  Report Type: Spontaneous
  Country: EU (occurrence: EU)
  Receive Date: 20251225
  Receipt Date: 20251225
  Transmission Date: 20260118
  Serious: Yes (Death, Other)
  Sender: AUROBINDO
  Company Number: EU-AFSSAPS-BR20220621

PATIENT
  Age: 41 Year
  Sex: Male

DRUGS (7)
  1. OLANZAPINE [Suspect]
     Active Substance: OLANZAPINE
     Indication: Schizophrenia
     Dosage: 1 DOSAGE FORM, ONCE A DAY (1 IN EVENING)
     Route: 061
     Dates: start: 20220130, end: 20220213
  2. TRIMEPRAZINE [Suspect]
     Active Substance: TRIMEPRAZINE
     Indication: Schizophrenia
     Dosage: 40 DOSAGE FORM, ONCE A DAY (40 DROPS AT BEDTIME)
     Route: 061
     Dates: start: 20220130, end: 20220213
  3. SERETIDE [Suspect]
     Active Substance: FLUTICASONE PROPIONATE\SALMETEROL XINAFOATE
     Indication: Chronic obstructive pulmonary disease
     Dosage: 2 DOSAGE FORM, ONCE A DAY (1 INH MORNING AND EVENING)
     Dates: start: 20220131, end: 20220213
  4. VALIUM [Suspect]
     Active Substance: DIAZEPAM
     Indication: Schizophrenia
     Dosage: 150 DOSAGE FORM, ONCE A DAY (30 DROPS MORNING, NOON, SNACK, EVENING AND BEDTIME)
     Route: 061
     Dates: start: 20220129, end: 20220213
  5. VALPROMIDE [Suspect]
     Active Substance: VALPROMIDE
     Indication: Mania
     Dosage: 2 DOSAGE FORM, ONCE A DAY (1 MORNING AND EVENING)
     Route: 061
     Dates: start: 20220202, end: 20220213
  6. TERALITHE [Suspect]
     Active Substance: LITHIUM CARBONATE
     Indication: Schizophrenia
     Dosage: 1 DOSAGE FORM, ONCE A DAY (1 IN THE EVENING)
     Route: 061
     Dates: start: 20220209, end: 20220213
  7. TROPATEPINE HYDROCHLORIDE [Suspect]
     Active Substance: TROPATEPINE HYDROCHLORIDE
     Indication: Tremor
     Dosage: 2 DOSAGE FORM, ONCE A DAY (1 NOON AND EVENING)
     Route: 061
     Dates: start: 20220207, end: 20220213

REACTIONS (1)
  - Death [Fatal]

NARRATIVE: CASE EVENT DATE: 20220214
